FAERS Safety Report 25441274 (Version 1)
Quarter: 2025Q2

REPORT INFORMATION
  Report Type: Spontaneous
  Country: US (occurrence: US)
  Receive Date: 20250616
  Receipt Date: 20250616
  Transmission Date: 20250716
  Serious: No
  Sender: KRAMER LABORATORIES
  Company Number: US-KRAMERLABS-2025-US-020471

PATIENT
  Sex: Male

DRUGS (1)
  1. NIZORAL ANTI-DANDRUFF KETOCONAZOLE 1 ANTI-DANDRUFF [Suspect]
     Active Substance: KETOCONAZOLE
     Indication: Dandruff
     Route: 061

REACTIONS (1)
  - Drug ineffective [Unknown]
